FAERS Safety Report 19243168 (Version 4)
Quarter: 2022Q1

REPORT INFORMATION
  Report Type: Spontaneous
  Country: US (occurrence: US)
  Receive Date: 20210511
  Receipt Date: 20220308
  Transmission Date: 20220424
  Serious: Yes (Hospitalization, Disabling, Other)
  Sender: FDA-Public Use
  Company Number: US-PFIZER INC-2021476095

PATIENT
  Age: 74 Year
  Sex: Female
  Weight: 87.09 kg

DRUGS (4)
  1. IBRANCE [Suspect]
     Active Substance: PALBOCICLIB
     Indication: Bone cancer
     Dosage: 125 MG, CYCLIC [ONCE A DAY AT NIGHT/21 DAYS OFF 7 DAYS, 21 MORE DAYS OFF 7 DAYS]
     Route: 048
     Dates: start: 20210301
  2. IBRANCE [Suspect]
     Active Substance: PALBOCICLIB
     Dosage: 100 MG
  3. SPIRONOLACTONE [Concomitant]
     Active Substance: SPIRONOLACTONE
     Indication: Oedema
     Dosage: 50 MG, 1X/DAY [ONCE A DAY IN MORNING ORALLY]
     Route: 048
     Dates: start: 2001
  4. LEVOTHYROXINE [Concomitant]
     Active Substance: LEVOTHYROXINE
     Indication: Hypothyroidism
     Dosage: 75 UG, 1X/DAY [ONCE A DAY AT NIGHT]

REACTIONS (9)
  - Choking [Recovering/Resolving]
  - General physical health deterioration [Unknown]
  - Fall [Unknown]
  - Epistaxis [Unknown]
  - Stomatitis [Recovering/Resolving]
  - Gingival pain [Unknown]
  - Tongue discolouration [Unknown]
  - Fatigue [Unknown]
  - Off label use [Unknown]

NARRATIVE: CASE EVENT DATE: 20210101
